FAERS Safety Report 6974921-X (Version None)
Quarter: 2010Q3

REPORT INFORMATION
  Report Type: 
  Country: None (occurrence: None)
  Receive Date: 20100909
  Receipt Date: 20081223
  Transmission Date: 20110219
  Serious: No
  Sender: FDA-Public Use
  Company Number: US-WYE-H07398408

PATIENT
  Sex: Male
  Weight: 102.15 kg

DRUGS (4)
  1. PRISTIQ [Suspect]
     Indication: DEPRESSION
     Route: 048
     Dates: start: 20081205
  2. XANAX [Concomitant]
  3. LISINOPRIL [Concomitant]
  4. ATIVAN [Concomitant]

REACTIONS (3)
  - CONDITION AGGRAVATED [None]
  - NAUSEA [None]
  - RETCHING [None]
